FAERS Safety Report 18964028 (Version 1)
Quarter: 2021Q1

REPORT INFORMATION
  Report Type: Spontaneous
  Country: CH (occurrence: CH)
  Receive Date: 20210303
  Receipt Date: 20210303
  Transmission Date: 20210420
  Serious: Yes (Other)
  Sender: FDA-Public Use
  Company Number: CH-ASTRAZENECA-2021A068866

PATIENT
  Age: 623 Month
  Sex: Male

DRUGS (20)
  1. FLUCTINE [Interacting]
     Active Substance: FLUOXETINE HYDROCHLORIDE
     Route: 048
     Dates: start: 201906, end: 201907
  2. TRANXILIUM [Interacting]
     Active Substance: CLORAZEPATE DIPOTASSIUM
     Route: 065
     Dates: start: 20191105, end: 20191114
  3. TRAMAL [Interacting]
     Active Substance: TRAMADOL
     Route: 065
  4. CYMBALTA [Concomitant]
     Active Substance: DULOXETINE HYDROCHLORIDE
     Dates: end: 201904
  5. FOLIC ACID. [Concomitant]
     Active Substance: FOLIC ACID
  6. PANTOPRAZOLE [Concomitant]
     Active Substance: PANTOPRAZOLE
  7. SEQUASE [Suspect]
     Active Substance: QUETIAPINE FUMARATE
     Route: 048
     Dates: end: 201909
  8. FLUCTINE [Interacting]
     Active Substance: FLUOXETINE HYDROCHLORIDE
     Route: 048
     Dates: start: 201907, end: 20191115
  9. TRANXILIUM [Interacting]
     Active Substance: CLORAZEPATE DIPOTASSIUM
     Route: 065
     Dates: start: 20191011, end: 20191027
  10. SEQUASE [Interacting]
     Active Substance: QUETIAPINE FUMARATE
     Dosage: 2 DAYS
     Route: 048
     Dates: start: 20191108
  11. FLUCTINE [Interacting]
     Active Substance: FLUOXETINE HYDROCHLORIDE
     Route: 048
     Dates: start: 201907, end: 201907
  12. TRANXILIUM [Interacting]
     Active Substance: CLORAZEPATE DIPOTASSIUM
     Dates: start: 20191028, end: 20191104
  13. TRANXILIUM [Interacting]
     Active Substance: CLORAZEPATE DIPOTASSIUM
     Route: 065
     Dates: start: 20191115, end: 20191217
  14. WELLBUTRIN [Concomitant]
     Active Substance: BUPROPION HYDROCHLORIDE
     Dates: start: 201904, end: 201906
  15. UTROGESTAN [Concomitant]
     Active Substance: PROGESTERONE
  16. SEQUASE [Interacting]
     Active Substance: QUETIAPINE FUMARATE
     Dosage: 2 DAYS
     Route: 048
     Dates: start: 201909, end: 20191108
  17. LITHIOFOR [Interacting]
     Active Substance: LITHIUM SULFATE
     Route: 065
     Dates: start: 20190917, end: 201912
  18. TRANXILIUM [Interacting]
     Active Substance: CLORAZEPATE DIPOTASSIUM
     Route: 065
     Dates: start: 20191217
  19. TRANXILIUM [Interacting]
     Active Substance: CLORAZEPATE DIPOTASSIUM
     Dosage: AS NECESSARY
     Route: 065
     Dates: start: 20191217
  20. ANXIOLIT [Concomitant]
     Active Substance: OXAZEPAM
     Dates: end: 20191011

REACTIONS (6)
  - Drug interaction [Recovered/Resolved]
  - Tremor [Recovered/Resolved]
  - Asthenia [Recovered/Resolved]
  - Antipsychotic drug level above therapeutic [Recovered/Resolved]
  - Cognitive disorder [Recovered/Resolved]
  - Balance disorder [Recovered/Resolved]

NARRATIVE: CASE EVENT DATE: 201910
